FAERS Safety Report 14165912 (Version 11)
Quarter: 2023Q1

REPORT INFORMATION
  Report Type: Spontaneous
  Country: GB (occurrence: GB)
  Receive Date: 20171107
  Receipt Date: 20230103
  Transmission Date: 20230418
  Serious: Yes (Other)
  Sender: FDA-Public Use
  Company Number: GB-GILEAD-2017-0303084

PATIENT
  Age: 85 Year
  Sex: Male

DRUGS (106)
  1. GENVOYA [Suspect]
     Active Substance: COBICISTAT\ELVITEGRAVIR\EMTRICITABINE\TENOFOVIR ALAFENAMIDE FUMARATE
     Indication: HIV infection
     Dosage: 245 UNK
     Route: 065
  2. GENVOYA [Suspect]
     Active Substance: COBICISTAT\ELVITEGRAVIR\EMTRICITABINE\TENOFOVIR ALAFENAMIDE FUMARATE
     Indication: HIV infection
     Dosage: UNK
     Route: 065
  3. SIMVASTATIN [Suspect]
     Active Substance: SIMVASTATIN
     Indication: Cardiovascular event prophylaxis
     Dosage: UNK (FILM-COATED TABLET)
     Route: 065
  4. SIMVASTATIN [Suspect]
     Active Substance: SIMVASTATIN
     Indication: Disease risk factor
     Dosage: UNK
     Route: 065
  5. SIMVASTATIN [Suspect]
     Active Substance: SIMVASTATIN
     Dosage: UNK
     Route: 065
  6. SIMVASTATIN [Suspect]
     Active Substance: SIMVASTATIN
     Dosage: UNK
     Route: 065
  7. SIMVASTATIN [Suspect]
     Active Substance: SIMVASTATIN
     Dosage: UNK (FILM-COATED TABLET)
     Route: 065
  8. SIMVASTATIN [Suspect]
     Active Substance: SIMVASTATIN
     Dosage: UNK
     Route: 065
  9. MESALAMINE [Suspect]
     Active Substance: MESALAMINE
     Dosage: UNK
     Route: 065
  10. MESALAMINE [Suspect]
     Active Substance: MESALAMINE
     Indication: Crohn^s disease
     Dosage: UNK
     Route: 065
  11. MESALAMINE [Suspect]
     Active Substance: MESALAMINE
     Indication: Inflammatory bowel disease
     Dosage: UNK
     Route: 065
  12. MESALAMINE [Suspect]
     Active Substance: MESALAMINE
     Indication: Inflammatory bowel disease
     Dosage: UNK
     Route: 065
  13. MESALAMINE [Suspect]
     Active Substance: MESALAMINE
     Dosage: UNK
     Route: 065
  14. MESALAMINE [Suspect]
     Active Substance: MESALAMINE
     Dosage: UNK
     Route: 065
  15. MESALAMINE [Suspect]
     Active Substance: MESALAMINE
     Dosage: UNK
     Route: 065
  16. MESALAMINE [Suspect]
     Active Substance: MESALAMINE
     Dosage: UNK
     Route: 065
  17. MESALAMINE [Suspect]
     Active Substance: MESALAMINE
     Dosage: UNK
     Route: 065
  18. MESALAMINE [Suspect]
     Active Substance: MESALAMINE
     Dosage: UNK
     Route: 065
  19. MESALAMINE [Suspect]
     Active Substance: MESALAMINE
     Dosage: UNK, BID
     Route: 065
  20. MESALAMINE [Suspect]
     Active Substance: MESALAMINE
     Dosage: UNK
     Route: 065
  21. MESALAMINE [Suspect]
     Active Substance: MESALAMINE
     Dosage: UNK
     Route: 065
  22. MESALAMINE [Suspect]
     Active Substance: MESALAMINE
     Dosage: UNK
     Route: 065
  23. MESALAMINE [Suspect]
     Active Substance: MESALAMINE
     Route: 065
  24. ABACAVIR [Concomitant]
     Active Substance: ABACAVIR
     Indication: HIV infection
     Dosage: UNK
     Route: 065
  25. ABACAVIR [Concomitant]
     Active Substance: ABACAVIR
     Route: 065
  26. ABACAVIR [Concomitant]
     Active Substance: ABACAVIR
     Dosage: UNK
     Route: 065
  27. ABACAVIR [Concomitant]
     Active Substance: ABACAVIR
     Route: 065
  28. ABACAVIR [Concomitant]
     Active Substance: ABACAVIR
     Route: 065
  29. ABACAVIR [Concomitant]
     Active Substance: ABACAVIR
     Route: 065
  30. ABACAVIR [Concomitant]
     Active Substance: ABACAVIR
     Route: 065
  31. ABACAVIR [Concomitant]
     Active Substance: ABACAVIR
     Route: 065
  32. ABACAVIR [Concomitant]
     Active Substance: ABACAVIR
     Route: 065
  33. ABACAVIR [Concomitant]
     Active Substance: ABACAVIR
     Route: 065
  34. ABACAVIR [Concomitant]
     Active Substance: ABACAVIR
     Dosage: UNK
     Route: 065
  35. ABACAVIR [Concomitant]
     Active Substance: ABACAVIR
     Dosage: UNK
     Route: 065
  36. ABACAVIR [Concomitant]
     Active Substance: ABACAVIR
     Route: 065
  37. ABACAVIR [Concomitant]
     Active Substance: ABACAVIR
     Route: 065
  38. ABACAVIR [Concomitant]
     Active Substance: ABACAVIR
     Route: 065
  39. ABACAVIR [Concomitant]
     Active Substance: ABACAVIR
     Dosage: UNK
     Route: 065
  40. ABACAVIR [Concomitant]
     Active Substance: ABACAVIR
     Route: 065
  41. ABACAVIR [Concomitant]
     Active Substance: ABACAVIR
     Route: 065
  42. EFAVIRENZ [Concomitant]
     Active Substance: EFAVIRENZ
     Indication: HIV infection
     Dosage: UNK
     Route: 065
  43. EFAVIRENZ [Concomitant]
     Active Substance: EFAVIRENZ
     Indication: Product used for unknown indication
     Route: 065
  44. EFAVIRENZ [Concomitant]
     Active Substance: EFAVIRENZ
     Route: 065
  45. EFAVIRENZ [Concomitant]
     Active Substance: EFAVIRENZ
     Route: 065
  46. EFAVIRENZ [Concomitant]
     Active Substance: EFAVIRENZ
     Route: 065
  47. EFAVIRENZ [Concomitant]
     Active Substance: EFAVIRENZ
     Route: 065
  48. EFAVIRENZ [Concomitant]
     Active Substance: EFAVIRENZ
     Route: 065
  49. EFAVIRENZ [Concomitant]
     Active Substance: EFAVIRENZ
     Route: 065
  50. EFAVIRENZ [Concomitant]
     Active Substance: EFAVIRENZ
     Route: 065
  51. EFAVIRENZ [Concomitant]
     Active Substance: EFAVIRENZ
  52. EFAVIRENZ [Concomitant]
     Active Substance: EFAVIRENZ
     Route: 065
  53. EFAVIRENZ [Concomitant]
     Active Substance: EFAVIRENZ
     Route: 065
  54. DOXAZOSIN [Concomitant]
     Active Substance: DOXAZOSIN MESYLATE
     Indication: Hypertension
     Dosage: UNK
     Route: 065
  55. DOXAZOSIN [Concomitant]
     Active Substance: DOXAZOSIN MESYLATE
     Indication: Hypertension
     Dosage: UNK
     Route: 065
  56. DOXAZOSIN [Concomitant]
     Active Substance: DOXAZOSIN MESYLATE
     Dosage: UNK
     Route: 065
  57. DOXAZOSIN [Concomitant]
     Active Substance: DOXAZOSIN MESYLATE
     Route: 065
  58. DOXAZOSIN [Concomitant]
     Active Substance: DOXAZOSIN MESYLATE
     Route: 065
  59. DOXAZOSIN [Concomitant]
     Active Substance: DOXAZOSIN MESYLATE
     Route: 065
  60. DOXAZOSIN [Concomitant]
     Active Substance: DOXAZOSIN MESYLATE
     Route: 065
  61. DOXAZOSIN [Concomitant]
     Active Substance: DOXAZOSIN MESYLATE
     Dosage: UNK
  62. DOXAZOSIN [Concomitant]
     Active Substance: DOXAZOSIN MESYLATE
     Route: 065
  63. DOXAZOSIN [Concomitant]
     Active Substance: DOXAZOSIN MESYLATE
     Route: 065
  64. DOXAZOSIN [Concomitant]
     Active Substance: DOXAZOSIN MESYLATE
     Dosage: UNK
  65. DOXAZOSIN [Concomitant]
     Active Substance: DOXAZOSIN MESYLATE
     Dosage: UNK
     Route: 065
  66. DOXAZOSIN [Concomitant]
     Active Substance: DOXAZOSIN MESYLATE
     Route: 065
  67. LOSARTAN [Concomitant]
     Active Substance: LOSARTAN
     Indication: Hypertension
     Dosage: UNK
     Route: 048
  68. LOSARTAN [Concomitant]
     Active Substance: LOSARTAN
     Indication: Hypertension
     Route: 065
  69. LOSARTAN [Concomitant]
     Active Substance: LOSARTAN
     Dosage: UNK
     Route: 048
  70. LOSARTAN [Concomitant]
     Active Substance: LOSARTAN
     Route: 065
  71. LOSARTAN [Concomitant]
     Active Substance: LOSARTAN
     Route: 065
  72. LOSARTAN [Concomitant]
     Active Substance: LOSARTAN
     Route: 065
  73. LOSARTAN [Concomitant]
     Active Substance: LOSARTAN
     Route: 065
  74. LOSARTAN [Concomitant]
     Active Substance: LOSARTAN
     Route: 065
  75. LOSARTAN [Concomitant]
     Active Substance: LOSARTAN
     Route: 065
  76. LOSARTAN [Concomitant]
     Active Substance: LOSARTAN
     Route: 065
  77. LOSARTAN [Concomitant]
     Active Substance: LOSARTAN
     Route: 065
  78. LOSARTAN [Concomitant]
     Active Substance: LOSARTAN
     Dosage: UNK
     Route: 048
  79. LOSARTAN [Concomitant]
     Active Substance: LOSARTAN
     Route: 065
  80. LOSARTAN [Concomitant]
     Active Substance: LOSARTAN
     Route: 065
  81. LOSARTAN [Concomitant]
     Active Substance: LOSARTAN
     Route: 065
  82. LOSARTAN [Concomitant]
     Active Substance: LOSARTAN
     Dosage: UNK
     Route: 048
  83. LOSARTAN [Concomitant]
     Active Substance: LOSARTAN
     Route: 065
  84. LOSARTAN [Concomitant]
     Active Substance: LOSARTAN
     Route: 065
  85. LAMIVUDINE [Concomitant]
     Active Substance: LAMIVUDINE
     Indication: HIV infection
     Dosage: UNK
     Route: 065
  86. LAMIVUDINE [Concomitant]
     Active Substance: LAMIVUDINE
     Dosage: UNK
     Route: 065
  87. LAMIVUDINE [Concomitant]
     Active Substance: LAMIVUDINE
     Dosage: UNK
  88. LAMIVUDINE [Concomitant]
     Active Substance: LAMIVUDINE
     Dosage: UNK
  89. LAMIVUDINE [Concomitant]
     Active Substance: LAMIVUDINE
     Indication: HIV infection
     Route: 065
  90. LAMIVUDINE [Concomitant]
     Active Substance: LAMIVUDINE
     Route: 065
  91. LAMIVUDINE [Concomitant]
     Active Substance: LAMIVUDINE
     Route: 065
  92. LAMIVUDINE [Concomitant]
     Active Substance: LAMIVUDINE
     Route: 065
  93. LAMIVUDINE [Concomitant]
     Active Substance: LAMIVUDINE
     Route: 065
  94. LAMIVUDINE [Concomitant]
     Active Substance: LAMIVUDINE
     Route: 065
  95. LAMIVUDINE [Concomitant]
     Active Substance: LAMIVUDINE
     Route: 065
  96. LAMIVUDINE [Concomitant]
     Active Substance: LAMIVUDINE
     Route: 065
  97. LAMIVUDINE [Concomitant]
     Active Substance: LAMIVUDINE
     Route: 065
  98. LAMIVUDINE [Concomitant]
     Active Substance: LAMIVUDINE
     Route: 065
  99. LAMIVUDINE [Concomitant]
     Active Substance: LAMIVUDINE
  100. LAMIVUDINE [Concomitant]
     Active Substance: LAMIVUDINE
     Route: 065
  101. LAMIVUDINE [Concomitant]
     Active Substance: LAMIVUDINE
     Route: 065
  102. LAMIVUDINE [Concomitant]
     Active Substance: LAMIVUDINE
     Route: 065
  103. LAMIVUDINE [Concomitant]
     Active Substance: LAMIVUDINE
  104. LAMIVUDINE [Concomitant]
     Active Substance: LAMIVUDINE
     Route: 065
  105. LAMIVUDINE [Concomitant]
     Active Substance: LAMIVUDINE
     Route: 065
  106. TENOFOVIR DISOPROXIL FUMARATE [Concomitant]
     Active Substance: TENOFOVIR DISOPROXIL FUMARATE
     Indication: Product used for unknown indication

REACTIONS (2)
  - Renal impairment [Recovering/Resolving]
  - Drug interaction [Unknown]
